FAERS Safety Report 6313383-2 (Version None)
Quarter: 2009Q3

REPORT INFORMATION
  Report Type: 
  Country: None (occurrence: None)
  Receive Date: 20090818
  Receipt Date: 20090813
  Transmission Date: 20100115
  Serious: Yes (Other)
  Sender: FDA-Public Use
  Company Number: ES-ABBOTT-09P-144-0591093-00

PATIENT
  Age: 29 Year
  Sex: Female

DRUGS (1)
  1. DEPAKENE [Suspect]
     Indication: ANXIETY
     Route: 048
     Dates: start: 20090416, end: 20090423

REACTIONS (4)
  - CYANOSIS [None]
  - DIZZINESS [None]
  - MYODESOPSIA [None]
  - PARAESTHESIA [None]
